FAERS Safety Report 13976840 (Version 1)
Quarter: 2017Q3

REPORT INFORMATION
  Report Type: Spontaneous
  Country: US (occurrence: GB)
  Receive Date: 20170915
  Receipt Date: 20170915
  Transmission Date: 20171128
  Serious: Yes (Other)
  Sender: FDA-Public Use
  Company Number: US-SUNOVION-2017SUN004033

PATIENT

DRUGS (17)
  1. HUMULIN M3 [Concomitant]
     Active Substance: INSULIN HUMAN
     Dosage: UNK
     Dates: start: 20160314
  2. HYPROMELLOSE [Concomitant]
     Active Substance: HYPROMELLOSES
     Dosage: UNK
     Dates: start: 20160615
  3. LATANOPROST. [Concomitant]
     Active Substance: LATANOPROST
     Dosage: UNK
     Dates: start: 20141113
  4. QUININE [Concomitant]
     Active Substance: QUININE
     Dosage: UNK
     Dates: start: 20161116
  5. BISOPROLOL [Concomitant]
     Active Substance: BISOPROLOL
     Dosage: UNK
     Dates: start: 20170517
  6. RANITIDINE. [Concomitant]
     Active Substance: RANITIDINE
     Dosage: UNK
     Dates: start: 20170517
  7. SPIRONOLACTONE. [Concomitant]
     Active Substance: SPIRONOLACTONE
     Dosage: UNK
     Dates: start: 20170517, end: 20170718
  8. INDACATEROL AND GLYCOPYRROLATE [Suspect]
     Active Substance: GLYCOPYRROLATE\INDACATEROL MALEATE
     Indication: PRODUCT USED FOR UNKNOWN INDICATION
     Dosage: UNK
     Route: 065
     Dates: start: 20170714, end: 20170824
  9. AMITRIPTYLINE HYDROCHLORIDE. [Concomitant]
     Active Substance: AMITRIPTYLINE HYDROCHLORIDE
     Dosage: UNK
     Dates: start: 20161215
  10. PARACETAMOL [Concomitant]
     Active Substance: ACETAMINOPHEN
     Dosage: UNK
     Dates: start: 20170517
  11. SALBUTAMOL [Concomitant]
     Active Substance: ALBUTEROL
     Dosage: UNK
     Dates: start: 20030820
  12. TIOTROPIUM [Concomitant]
     Active Substance: TIOTROPIUM
     Dosage: UNK
     Dates: start: 20160518, end: 20170714
  13. ASPIRIN. [Concomitant]
     Active Substance: ASPIRIN
     Dosage: UNK
     Dates: start: 20170517
  14. HIDROXOCOBALAMINA [Concomitant]
     Dosage: UNK
     Dates: start: 20170731, end: 20170801
  15. FUROSEMIDE. [Concomitant]
     Active Substance: FUROSEMIDE
     Dosage: UNK
     Dates: start: 20160413
  16. SIMVASTATIN. [Concomitant]
     Active Substance: SIMVASTATIN
     Dosage: UNK
     Dates: start: 20170517
  17. PERINDOPRIL ERBUMINE. [Concomitant]
     Active Substance: PERINDOPRIL ERBUMINE
     Dosage: UNK
     Dates: start: 20150917

REACTIONS (1)
  - Suicidal ideation [Recovered/Resolved]

NARRATIVE: CASE EVENT DATE: 20170824
